FAERS Safety Report 19461678 (Version 3)
Quarter: 2021Q3

REPORT INFORMATION
  Report Type: Spontaneous
  Country: US (occurrence: US)
  Receive Date: 20210625
  Receipt Date: 20210715
  Transmission Date: 20211014
  Serious: No
  Sender: FDA-Public Use
  Company Number: US-BIOGEN-2021BI01024431

PATIENT
  Sex: Female

DRUGS (1)
  1. TECFIDERA [Suspect]
     Active Substance: DIMETHYL FUMARATE
     Indication: MULTIPLE SCLEROSIS
     Route: 065
     Dates: start: 20160323

REACTIONS (7)
  - White blood cell count decreased [Unknown]
  - Oropharyngeal pain [Unknown]
  - Cough [Unknown]
  - Product dose omission issue [Unknown]
  - Musculoskeletal disorder [Unknown]
  - Sneezing [Unknown]
  - Lymphopenia [Unknown]
